FAERS Safety Report 9282706 (Version 1)
Quarter: 2013Q2

REPORT INFORMATION
  Report Type: Spontaneous
  Country: US (occurrence: None)
  Receive Date: 20130509
  Receipt Date: 20130509
  Transmission Date: 20140414
  Serious: Yes (Disabling, Other)
  Sender: FDA-Public Use
  Company Number: None

PATIENT
  Age: 49 Year
  Sex: Female
  Weight: 58.97 kg

DRUGS (5)
  1. ABILIFY [Suspect]
     Indication: BIPOLAR DISORDER
     Dosage: ABOUT A MONTH + HALF
  2. LEVOXYL 0.125MG [Concomitant]
  3. CELEXA 40MG [Concomitant]
  4. SIMVASTATIN 10MG [Concomitant]
  5. KLONOPIN 2MG ROCHE [Concomitant]

REACTIONS (11)
  - Swollen tongue [None]
  - Tremor [None]
  - Dysphonia [None]
  - Muscle twitching [None]
  - Decreased appetite [None]
  - Weight decreased [None]
  - Disturbance in attention [None]
  - Memory impairment [None]
  - Gait disturbance [None]
  - Tremor [None]
  - Dyskinesia [None]
